FAERS Safety Report 25592245 (Version 1)
Quarter: 2025Q3

REPORT INFORMATION
  Report Type: Spontaneous
  Country: CA (occurrence: CA)
  Receive Date: 20250722
  Receipt Date: 20250722
  Transmission Date: 20251020
  Serious: Yes (Other)
  Sender: TEVA
  Company Number: CA-TEVA-VS-3353257

PATIENT
  Age: 68 Year
  Sex: Female

DRUGS (3)
  1. MORPHINE SULFATE [Suspect]
     Active Substance: MORPHINE SULFATE
     Indication: Postoperative care
     Route: 065
  2. HERBALS\PLANTAGO OVATA LEAF [Suspect]
     Active Substance: HERBALS\PLANTAGO OVATA LEAF
     Indication: Post procedural constipation
     Route: 065
  3. POLYETHYLENE GLYCOL 3350 [Suspect]
     Active Substance: POLYETHYLENE GLYCOL 3350
     Indication: Post procedural constipation
     Dosage: DOSE FORM: POWDER FOR SOLUTION ORAL
     Route: 065

REACTIONS (4)
  - Intestinal obstruction [Recovered/Resolved]
  - Therapeutic product effect delayed [Recovered/Resolved]
  - Inappropriate schedule of product administration [Recovered/Resolved]
  - Diarrhoea [Recovered/Resolved]
